FAERS Safety Report 25917898 (Version 1)
Quarter: 2025Q4

REPORT INFORMATION
  Report Type: Spontaneous
  Country: CA (occurrence: CA)
  Receive Date: 20251014
  Receipt Date: 20251014
  Transmission Date: 20260118
  Serious: Yes (Hospitalization)
  Sender: CELLTRION
  Company Number: CA-CELLTRION INC.-2025CA036422

PATIENT

DRUGS (5)
  1. INFLIXIMAB [Suspect]
     Active Substance: INFLIXIMAB
     Indication: Colitis ulcerative
     Dosage: 500.0 MILLIGRAM
     Route: 042
  2. INFLIXIMAB [Suspect]
     Active Substance: INFLIXIMAB
     Dosage: 500.0 MILLIGRAM
     Route: 042
  3. INFLIXIMAB [Suspect]
     Active Substance: INFLIXIMAB
     Dosage: 500.0 MILLIGRAM
     Route: 042
  4. MESALAMINE [Concomitant]
     Active Substance: MESALAMINE
     Dosage: 1 DOSAGE FORM (DELAYED AND EXTENDED RELEASE TABLET)
  5. PREDNISONE [Concomitant]
     Active Substance: PREDNISONE
     Dosage: 40.0 MILLIGRAM

REACTIONS (3)
  - Condition aggravated [Not Recovered/Not Resolved]
  - Arthritis infective [Not Recovered/Not Resolved]
  - Off label use [Not Recovered/Not Resolved]
